FAERS Safety Report 4988499-3 (Version None)
Quarter: 2006Q2

REPORT INFORMATION
  Report Type: 
  Country: None (occurrence: None)
  Receive Date: 20060426
  Receipt Date: 20060406
  Transmission Date: 20061013
  Serious: Yes (Hospitalization)
  Sender: FDA-Public Use
  Company Number: US200604001256

PATIENT
  Age: 89 Year
  Sex: Male

DRUGS (1)
  1. HUMULIN N [Suspect]
     Indication: DIABETES MELLITUS

REACTIONS (4)
  - BLOOD GLUCOSE DECREASED [None]
  - BLOOD GLUCOSE INCREASED [None]
  - FALL [None]
  - MALAISE [None]
